FAERS Safety Report 20187215 (Version 1)
Quarter: 2021Q4

REPORT INFORMATION
  Report Type: Report from Study
  Country: CA (occurrence: CA)
  Receive Date: 20211215
  Receipt Date: 20211215
  Transmission Date: 20220303
  Serious: Yes (Hospitalization, Other)
  Sender: FDA-Public Use
  Company Number: CA-ABBVIE-21K-028-4116385-00

PATIENT
  Age: 81 Year
  Sex: Female

DRUGS (2)
  1. HUMIRA [Suspect]
     Active Substance: ADALIMUMAB
     Indication: Rheumatoid arthritis
     Route: 058
     Dates: start: 20190926
  2. COVID-19 VACCINE NOS [Suspect]
     Active Substance: COVID-19 VACCINE NOS
     Indication: COVID-19 prophylaxis
     Route: 030
     Dates: start: 2021, end: 2021

REACTIONS (17)
  - Vein disorder [Unknown]
  - Malaise [Unknown]
  - Feeling hot [Unknown]
  - Peripheral venous disease [Unknown]
  - Musculoskeletal disorder [Unknown]
  - Skin discolouration [Unknown]
  - Skin disorder [Unknown]
  - Asthenia [Unknown]
  - Dysstasia [Unknown]
  - Joint range of motion decreased [Unknown]
  - Pruritus [Unknown]
  - Erythema [Unknown]
  - Peripheral swelling [Unknown]
  - Erythema [Unknown]
  - Pain in extremity [Unknown]
  - Dyspnoea [Unknown]
  - Arthropathy [Unknown]

NARRATIVE: CASE EVENT DATE: 20210901
